FAERS Safety Report 25370608 (Version 1)
Quarter: 2025Q2

REPORT INFORMATION
  Report Type: Spontaneous
  Country: US (occurrence: US)
  Receive Date: 20250528
  Receipt Date: 20250528
  Transmission Date: 20250716
  Serious: Yes (Death)
  Sender: ALEXION PHARMACEUTICALS
  Company Number: US-AstraZeneca-CH-00876975A

PATIENT
  Age: 54 Year
  Weight: 66.7 kg

DRUGS (6)
  1. LYNPARZA [Suspect]
     Active Substance: OLAPARIB
     Indication: Neoplasm
     Dosage: 300 MILLIGRAM, BID
  2. UNSPECIFIED INGREDIENT [Suspect]
     Active Substance: UNSPECIFIED INGREDIENT
     Indication: Neoplasm
     Dosage: 80 MILLIGRAM, QD
  3. LEVOTHYROXINE [Concomitant]
     Active Substance: LEVOTHYROXINE
     Route: 065
  4. MIRTAZAPINE [Concomitant]
     Active Substance: MIRTAZAPINE
     Route: 065
  5. BUPRENORPHINE [Concomitant]
     Active Substance: BUPRENORPHINE
     Route: 065
  6. OXYCODONE [Concomitant]
     Active Substance: OXYCODONE
     Route: 065

REACTIONS (11)
  - Sudden cardiac death [Fatal]
  - Aortic arteriosclerosis [Fatal]
  - Arteriosclerosis coronary artery [Fatal]
  - Pericardial fibrosis [Fatal]
  - Metastasis [Fatal]
  - Pulmonary embolism [Fatal]
  - Pulmonary thrombosis [Fatal]
  - Pleural fibrosis [Fatal]
  - Renal tubular necrosis [Fatal]
  - Glomerulosclerosis [Fatal]
  - Malignant neoplasm progression [Fatal]
